FAERS Safety Report 19901094 (Version 1)
Quarter: 2021Q3

REPORT INFORMATION
  Report Type: Spontaneous
  Country: US (occurrence: US)
  Receive Date: 20210930
  Receipt Date: 20210930
  Transmission Date: 20211014
  Serious: No
  Sender: FDA-Public Use
  Company Number: US-PFIZER INC-202101177622

PATIENT
  Age: 54 Year
  Sex: Female
  Weight: 66.68 kg

DRUGS (1)
  1. METHYLPREDNISOLONE ACETATE. [Suspect]
     Active Substance: METHYLPREDNISOLONE ACETATE
     Indication: INFLAMMATION
     Dosage: UNK, 1X/DAY (5?DAY 1 HOUR COURSE)
     Route: 041
     Dates: start: 20210830, end: 20210903

REACTIONS (1)
  - Therapeutic product effect incomplete [Unknown]
